FAERS Safety Report 18860320 (Version 2)
Quarter: 2021Q1

REPORT INFORMATION
  Report Type: Spontaneous
  Country: BR (occurrence: BR)
  Receive Date: 20210208
  Receipt Date: 20210215
  Transmission Date: 20210420
  Serious: Yes (Other)
  Sender: FDA-Public Use
  Company Number: BR-TAKEDA-2021TUS006451

PATIENT
  Sex: Male
  Weight: 65 kg

DRUGS (4)
  1. MESACOL [MESALAZINE] [Suspect]
     Active Substance: MESALAMINE
     Dosage: 500 MILLIGRAM, BID
     Route: 065
     Dates: start: 2018
  2. VITAMIN D NOS [Concomitant]
     Active Substance: VITAMIN D NOS
     Indication: CROHN^S DISEASE
     Dosage: UNK UNK, 1/WEEK
     Route: 048
     Dates: start: 2017
  3. AZATHIOPRINE. [Concomitant]
     Active Substance: AZATHIOPRINE
     Indication: CROHN^S DISEASE
     Dosage: 50 MILLIGRAM, TID
     Route: 048
     Dates: start: 2017
  4. MESACOL [MESALAZINE] [Suspect]
     Active Substance: MESALAMINE
     Indication: CROHN^S DISEASE
     Dosage: 250 MILLIGRAM, QID
     Route: 065
     Dates: start: 2018

REACTIONS (2)
  - Intestinal haemorrhage [Unknown]
  - Overdose [Unknown]

NARRATIVE: CASE EVENT DATE: 2018
